FAERS Safety Report 18536081 (Version 4)
Quarter: 2024Q1

REPORT INFORMATION
  Report Type: Spontaneous
  Country: RO (occurrence: RO)
  Receive Date: 20201123
  Receipt Date: 20240308
  Transmission Date: 20240410
  Serious: Yes (Death, Other)
  Sender: FDA-Public Use
  Company Number: RO-002147023-NVSC2020RO301101

PATIENT
  Age: 46 Year
  Sex: Male

DRUGS (11)
  1. CYTARABINE [Suspect]
     Active Substance: CYTARABINE
     Indication: Chronic myeloid leukaemia
     Dosage: 5700 MG, 2X/DAY ON DAYS 2 AND 3
     Route: 037
  2. CYTARABINE [Suspect]
     Active Substance: CYTARABINE
     Dosage: 40 MG
     Route: 037
  3. METHOTREXATE [Suspect]
     Active Substance: METHOTREXATE
     Indication: Chronic myeloid leukaemia
     Dosage: 1900 MG, SINGLE
     Route: 037
  4. METHOTREXATE [Suspect]
     Active Substance: METHOTREXATE
     Dosage: 15 MG, SINGLE
     Route: 037
  5. HYDREA [Suspect]
     Active Substance: HYDROXYUREA
     Indication: Chronic myeloid leukaemia
     Dosage: 1000 MG, 2X/DAY
  6. IMATINIB [Suspect]
     Active Substance: IMATINIB
     Indication: Chronic myeloid leukaemia
     Dosage: 800 MG, 1X/DAY(DAY 1 TO 28   )
  7. VINCRISTINE [Suspect]
     Active Substance: VINCRISTINE
     Indication: Chronic myeloid leukaemia
     Dosage: 2 MG, WEEKLY (2 MG, PER DAY, ON DAYS 1, 8, 15 AND 22   )
  8. DEXAMETHASONE [Suspect]
     Active Substance: DEXAMETHASONE
     Indication: Chronic myeloid leukaemia
     Dosage: 40 MG, CYCLIC (40 MG, PER DAY, ON DAYS 1-2, 8-9, 15-16 AND 22-23)
     Route: 037
  9. LEUCOVORIN CALCIUM [Concomitant]
     Active Substance: LEUCOVORIN CALCIUM
     Dosage: UNK
  10. GRANULOCYTE COLONY-STIMULATING FACTOR NOS [Concomitant]
     Active Substance: GRANULOCYTE COLONY-STIMULATING FACTOR NOS
     Indication: Aplasia
     Dosage: UNK
  11. ALLOPURINOL [Concomitant]
     Active Substance: ALLOPURINOL
     Indication: Hyperuricaemia
     Dosage: 100 MG, 2X/DAY

REACTIONS (8)
  - Acinetobacter sepsis [Fatal]
  - Multiple-drug resistance [Fatal]
  - Pyrexia [Fatal]
  - Cough [Fatal]
  - Blood pressure decreased [Fatal]
  - Oxygen saturation decreased [Fatal]
  - Aplasia [Fatal]
  - Condition aggravated [Fatal]
